FAERS Safety Report 7509426-0 (Version None)
Quarter: 2011Q2

REPORT INFORMATION
  Report Type: 
  Country: None (occurrence: None)
  Receive Date: 20110527
  Receipt Date: 20110526
  Transmission Date: 20111010
  Serious: Yes (Hospitalization, Other)
  Sender: FDA-Public Use
  Company Number: CO-ROCHE-779297

PATIENT
  Sex: Male

DRUGS (2)
  1. CELLCEPT [Suspect]
     Dosage: FREQUENCY: QD
     Route: 048
     Dates: start: 20090218
  2. PREDNISOLONE [Concomitant]
     Dosage: FREQ:QD
     Route: 048

REACTIONS (2)
  - TRANSPLANT REJECTION [None]
  - DIARRHOEA [None]
